FAERS Safety Report 14238472 (Version 1)
Quarter: 2017Q4

REPORT INFORMATION
  Report Type: Spontaneous
  Country: US (occurrence: US)
  Receive Date: 20171130
  Receipt Date: 20171130
  Transmission Date: 20180321
  Serious: No
  Sender: FDA-Public Use
  Company Number: US-PFIZER INC-2017512568

PATIENT
  Sex: Male

DRUGS (1)
  1. ATROPINE SULFATE/DIPHENOXYLATE HYDROCHLORIDE [Suspect]
     Active Substance: ATROPINE SULFATE\DIPHENOXYLATE HYDROCHLORIDE
     Indication: IRRITABLE BOWEL SYNDROME
     Dosage: 2 DF, 2X/DAY (2.5-0.025 MG, ORALLY, 2 TABLETS TWICE A DAY)
     Route: 048

REACTIONS (2)
  - Constipation [Unknown]
  - Osteoarthritis [Unknown]
